FAERS Safety Report 4924371-2 (Version None)
Quarter: 2006Q1

REPORT INFORMATION
  Report Type: 
  Country: None (occurrence: None)
  Receive Date: 20060227
  Receipt Date: 20060126
  Transmission Date: 20060701
  Serious: No
  Sender: FDA-Public Use
  Company Number: US-GLAXOSMITHKLINE-A0591088A

PATIENT
  Age: 27 Year
  Sex: Female

DRUGS (3)
  1. WELLBUTRIN XL [Suspect]
     Indication: DEPRESSION
     Dosage: 600MG PER DAY
     Route: 048
     Dates: start: 20051101
  2. VISTAGAN [Concomitant]
  3. XANAX [Concomitant]

REACTIONS (4)
  - INSOMNIA [None]
  - OVERDOSE [None]
  - PALPITATIONS [None]
  - TREMOR [None]
